FAERS Safety Report 20418988 (Version 1)
Quarter: 2022Q1

REPORT INFORMATION
  Report Type: Spontaneous
  Country: TW (occurrence: TW)
  Receive Date: 20220203
  Receipt Date: 20220203
  Transmission Date: 20220423
  Serious: Yes (Death, Other)
  Sender: FDA-Public Use
  Company Number: TW-AMGEN-TWNSP2022013804

PATIENT

DRUGS (6)
  1. PROLIA [Suspect]
     Active Substance: DENOSUMAB
     Indication: Osteoporosis
     Dosage: UNK
     Route: 065
  2. CHOLECALCIFEROL [Concomitant]
     Active Substance: CHOLECALCIFEROL
  3. CALCIUM [Concomitant]
     Active Substance: CALCIUM
  4. UNSPECIFIED INGREDIENT [Concomitant]
     Active Substance: UNSPECIFIED INGREDIENT
  5. TAMOXIFEN [Concomitant]
     Active Substance: TAMOXIFEN
  6. LETROZOLE [Concomitant]
     Active Substance: LETROZOLE

REACTIONS (9)
  - Death [Fatal]
  - Spinal fracture [Unknown]
  - Hip fracture [Unknown]
  - Radius fracture [Unknown]
  - Fracture [Unknown]
  - Arrhythmia [Unknown]
  - Cardiac failure [Unknown]
  - Myocardial ischaemia [Unknown]
  - Peripheral arterial occlusive disease [Unknown]
